FAERS Safety Report 7154187-0 (Version None)
Quarter: 2010Q4

REPORT INFORMATION
  Report Type: 
  Country: None (occurrence: None)
  Receive Date: 20101213
  Receipt Date: 20101202
  Transmission Date: 20110411
  Serious: Yes (Hospitalization)
  Sender: FDA-Public Use
  Company Number: US-ELI_LILLY_AND_COMPANY-US201012001195

PATIENT
  Sex: Female

DRUGS (1)
  1. HUMATROPE [Suspect]
     Dates: end: 20101201

REACTIONS (1)
  - THYROID CANCER [None]
